FAERS Safety Report 9349318 (Version 3)
Quarter: 2013Q3

REPORT INFORMATION
  Report Type: Report from Study
  Country: BR (occurrence: BR)
  Receive Date: 20130614
  Receipt Date: 20130702
  Transmission Date: 20140515
  Serious: Yes (Other)
  Sender: FDA-Public Use
  Company Number: BR-PFIZER INC-2013174837

PATIENT
  Age: 38 Year
  Sex: Male
  Weight: 53 kg

DRUGS (2)
  1. TALIGLUCERASE ALFA [Suspect]
     Indication: GAUCHER^S DISEASE
     Dosage: 3000 UNITS, EVERY TWO WEEKS (APPROXIMATELY 56 UNITS/KG/INFUSION)
     Route: 042
     Dates: start: 20101008
  2. HYDROCORTISONE [Concomitant]
     Indication: PROPHYLAXIS
     Dosage: 100 MG, AS NEEDED (BEFORE TALIGLUCERASE INFUSIONS)
     Dates: start: 201010

REACTIONS (4)
  - Erythema [Unknown]
  - Skin exfoliation [Unknown]
  - Rash [Recovered/Resolved]
  - Inappropriate schedule of drug administration [None]
